FAERS Safety Report 5780954-1 (Version None)
Quarter: 2008Q2

REPORT INFORMATION
  Report Type: 
  Country: None (occurrence: None)
  Receive Date: 20080620
  Receipt Date: 20080611
  Transmission Date: 20081010
  Serious: Yes (Other)
  Sender: FDA-Public Use
  Company Number: US-PFIZER INC-2008047907

PATIENT
  Sex: Male
  Weight: 72.1 kg

DRUGS (8)
  1. CELEBREX [Suspect]
     Indication: TENDONITIS
     Dates: start: 20080529, end: 20080601
  2. ALL OTHER THERAPEUTIC PRODUCTS [Concomitant]
  3. CRESTOR [Concomitant]
  4. ZETIA [Concomitant]
  5. PLAVIX [Concomitant]
  6. GABAPENTIN [Concomitant]
  7. PRAZOSIN HCL [Concomitant]
  8. CLONAZEPAM [Concomitant]

REACTIONS (3)
  - BLOOD URINE PRESENT [None]
  - CONTUSION [None]
  - HAEMATOCHEZIA [None]
